FAERS Safety Report 6458581-2 (Version None)
Quarter: 2009Q4

REPORT INFORMATION
  Report Type: 
  Country: None (occurrence: None)
  Receive Date: 20091126
  Receipt Date: 20091120
  Transmission Date: 20100525
  Serious: Yes (Life-Threatening, Hospitalization, Other)
  Sender: FDA-Public Use
  Company Number: GB-BRISTOL-MYERS SQUIBB COMPANY-14833610

PATIENT
  Age: 31 Year
  Sex: Female
  Weight: 67 kg

DRUGS (3)
  1. SUSTIVA [Suspect]
     Indication: ANTIVIRAL PROPHYLAXIS
     Route: 048
     Dates: start: 20050101
  2. IMPLANON [Interacting]
     Indication: CONTRACEPTION
     Dosage: BATCH NUM - 730175
     Route: 059
     Dates: start: 20051124
  3. KIVEXA [Interacting]
     Indication: ANTIVIRAL PROPHYLAXIS
     Dates: start: 20070101

REACTIONS (3)
  - DRUG INTERACTION [None]
  - ECTOPIC PREGNANCY [None]
  - PREGNANCY WITH IMPLANT CONTRACEPTIVE [None]
